FAERS Safety Report 8602478-6 (Version None)
Quarter: 2012Q2

REPORT INFORMATION
  Report Type: 
  Country: None (occurrence: None)
  Receive Date: 20120423
  Receipt Date: 20090508
  Transmission Date: 20120825
  Serious: Yes (Disabling, Other)
  Sender: FDA-Public Use
  Company Number: PHEH2008US10006

PATIENT
  Sex: Female

DRUGS (1)
  1. FEMARA [Suspect]
     Dosage: UNK
     Dates: start: 20071201

REACTIONS (12)
  - CONSTIPATION [None]
  - DIZZINESS [None]
  - WEIGHT INCREASED [None]
  - ARTHRALGIA [None]
  - ARTHRITIS [None]
  - NAUSEA [None]
  - URINARY TRACT INFECTION [None]
  - HEADACHE [None]
  - DYSSTASIA [None]
  - BONE PAIN [None]
  - FATIGUE [None]
  - SWELLING [None]
